FAERS Safety Report 25872075 (Version 3)
Quarter: 2025Q4

REPORT INFORMATION
  Report Type: Spontaneous
  Country: US (occurrence: US)
  Receive Date: 20251002
  Receipt Date: 20251219
  Transmission Date: 20260118
  Serious: No
  Sender: NOVARTIS
  Company Number: US-002147023-NVSC2025US146208

PATIENT
  Sex: Male

DRUGS (1)
  1. COSENTYX [Suspect]
     Active Substance: SECUKINUMAB
     Indication: Psoriasis
     Dosage: UNK, QMO (300 MG/2ML)
     Route: 058

REACTIONS (5)
  - Device use issue [Unknown]
  - Product quality issue [Unknown]
  - Drug dose omission by device [Unknown]
  - Needle issue [Unknown]
  - Psoriasis [Unknown]
